FAERS Safety Report 9979283 (Version 1)
Quarter: 2014Q1

REPORT INFORMATION
  Report Type: Report from Study
  Country: US (occurrence: US)
  Receive Date: 20140306
  Receipt Date: 20140306
  Transmission Date: 20141002
  Serious: No
  Sender: FDA-Public Use
  Company Number: US-ABBVIE-13P-163-1170915-00

PATIENT
  Age: 52 Year
  Sex: Female

DRUGS (10)
  1. HUMIRA [Suspect]
     Indication: RHEUMATOID ARTHRITIS
     Dates: start: 20130625, end: 20130918
  2. HUMIRA [Suspect]
     Dates: start: 20131014
  3. AMBIEN [Concomitant]
     Indication: INSOMNIA
     Dosage: ONCE AT NIGHT
  4. LIDOCAINE [Concomitant]
     Indication: PAIN
  5. PROZAC [Concomitant]
     Indication: DEPRESSION
  6. RANITIDINE [Concomitant]
     Indication: GASTRIC DISORDER
  7. VOLTAREN [Concomitant]
     Indication: PAIN
  8. XANAX [Concomitant]
     Indication: PANIC DISORDER
  9. VICODIN [Concomitant]
     Indication: PAIN
     Dosage: 5/500MG, 3 TIMES DAILY
  10. LACTULOSE [Concomitant]
     Indication: CONSTIPATION
     Dosage: 1 TABLESPOON IN EVENING

REACTIONS (9)
  - Photosensitivity reaction [Not Recovered/Not Resolved]
  - Drug ineffective [Not Recovered/Not Resolved]
  - Chills [Unknown]
  - Incontinence [Unknown]
  - Influenza like illness [Unknown]
  - Urinary tract infection [Recovered/Resolved]
  - Anaemia [Not Recovered/Not Resolved]
  - Blood iron decreased [Not Recovered/Not Resolved]
  - Haemoglobin abnormal [Not Recovered/Not Resolved]
